FAERS Safety Report 5229392-0 (Version None)
Quarter: 2007Q1

REPORT INFORMATION
  Report Type: 
  Country: None (occurrence: None)
  Receive Date: 20061201
  Receipt Date: 20060911
  Transmission Date: 20070707
  Serious: No
  Sender: FDA-Public Use
  Company Number: 2006PV021070

PATIENT
  Age: 55 Year
  Sex: Female
  Weight: 92.0802 kg

DRUGS (11)
  1. BYETTA [Suspect]
     Indication: DIABETES MELLITUS NON-INSULIN-DEPENDENT
     Dosage: SEE IMAGE
     Route: 058
     Dates: start: 20060621, end: 20060720
  2. BYETTA [Suspect]
     Indication: DIABETES MELLITUS NON-INSULIN-DEPENDENT
     Dosage: SEE IMAGE
     Route: 058
     Dates: start: 20060721, end: 20060817
  3. BYETTA [Suspect]
     Indication: DIABETES MELLITUS NON-INSULIN-DEPENDENT
     Dosage: SEE IMAGE
     Route: 058
     Dates: start: 20060821
  4. GLUCOPHAGE [Concomitant]
  5. GLIPIZIDE [Concomitant]
  6. NEXIUM [Concomitant]
  7. MULTI-VITAMIN [Concomitant]
  8. ASCORBIC ACID [Concomitant]
  9. FISH OIL [Concomitant]
  10. BROMFED [Concomitant]
  11. GLUCOSAMINE [Concomitant]

REACTIONS (6)
  - DECREASED APPETITE [None]
  - DIARRHOEA [None]
  - GASTROINTESTINAL PAIN [None]
  - INCREASED APPETITE [None]
  - NAUSEA [None]
  - VOMITING [None]
